FAERS Safety Report 9782570 (Version 1)
Quarter: 2013Q4

REPORT INFORMATION
  Report Type: Spontaneous
  Country: US (occurrence: US)
  Receive Date: 20131226
  Receipt Date: 20131226
  Transmission Date: 20140711
  Serious: No
  Sender: FDA-Public Use
  Company Number: US-BAYER-2013-155037

PATIENT
  Age: 42 Year
  Sex: Female

DRUGS (5)
  1. ALEVE CAPLET [Suspect]
  2. MELOXICAM [Concomitant]
     Dosage: 7.5 MG, UNK
  3. OXYCODONE HYDROCHLORIDE [Concomitant]
     Dosage: 5 MG, UNK
  4. MORPHINE ER [Concomitant]
     Dosage: 15 MG, UNK
  5. LYRICA [Concomitant]
     Dosage: 75 MG, BID

REACTIONS (1)
  - Drug hypersensitivity [None]
